FAERS Safety Report 7297048-9 (Version None)
Quarter: 2011Q1

REPORT INFORMATION
  Report Type: 
  Country: None (occurrence: None)
  Receive Date: 20110216
  Receipt Date: 20110210
  Transmission Date: 20110831
  Serious: Yes (Death, Other)
  Sender: FDA-Public Use
  Company Number: US-TEVA-241738USA

PATIENT
  Sex: Female

DRUGS (5)
  1. MIRTAZAPINE [Suspect]
     Route: 048
     Dates: start: 20100614, end: 20100101
  2. MEMANTINE HYDROCHLORIDE [Concomitant]
     Indication: AMNESIA
  3. MIRTAZAPINE [Suspect]
     Indication: INCREASED APPETITE
     Route: 048
     Dates: start: 20091101, end: 20100201
  4. IBANDRONATE SODIUM [Concomitant]
     Indication: OSTEOPOROSIS
  5. DONEEZIL HYDROCHLORIDE [Concomitant]
     Indication: AMNESIA

REACTIONS (10)
  - DEATH [None]
  - URINARY INCONTINENCE [None]
  - AGGRESSION [None]
  - LETHARGY [None]
  - DEPRESSION [None]
  - ACTIVITIES OF DAILY LIVING IMPAIRED [None]
  - INSOMNIA [None]
  - DECREASED APPETITE [None]
  - SOMNOLENCE [None]
  - HYPOREFLEXIA [None]
